FAERS Safety Report 9767731 (Version 3)
Quarter: 2014Q1

REPORT INFORMATION
  Report Type: Spontaneous
  Country: NL (occurrence: NL)
  Receive Date: 20131217
  Receipt Date: 20140122
  Transmission Date: 20141002
  Serious: Yes (Life-Threatening, Hospitalization)
  Sender: FDA-Public Use
  Company Number: NL-INCYTE CORPORATION-2013IN002971

PATIENT
  Sex: Female

DRUGS (4)
  1. JAKAVI [Suspect]
     Indication: MYELOFIBROSIS
     Dosage: 20 MG, TWICE DAILY
     Route: 048
     Dates: start: 20110808, end: 20130910
  2. NITROFURANTOIN [Concomitant]
  3. PANTOPRAZOLE [Concomitant]
     Dosage: UNK
     Dates: start: 2012
  4. DEFERASIROX [Concomitant]
     Dosage: UNK
     Dates: start: 201302, end: 201309

REACTIONS (2)
  - Cytokine storm [Unknown]
  - Hepatic failure [Unknown]
